FAERS Safety Report 7618293-6 (Version None)
Quarter: 2011Q3

REPORT INFORMATION
  Report Type: 
  Country: None (occurrence: None)
  Receive Date: 20110718
  Receipt Date: 20110712
  Transmission Date: 20111222
  Serious: Yes (Hospitalization)
  Sender: FDA-Public Use
  Company Number: FR-ROCHE-778664

PATIENT
  Sex: Female

DRUGS (14)
  1. HALDOL [Suspect]
     Dosage: 12 DROPS
     Route: 065
  2. MEMANTINE HYDROCHLORIDE [Suspect]
     Route: 048
     Dates: start: 20100201, end: 20100623
  3. HALDOL [Suspect]
     Dosage: REDUCED DOSAGE
     Route: 065
  4. ARICEPT [Suspect]
     Route: 065
     Dates: start: 20100201, end: 20100623
  5. LEVOTHYROXINE SODIUM [Concomitant]
     Indication: HYPOTHYROIDISM
     Route: 048
  6. MEPRONIZINE [Concomitant]
     Route: 048
  7. VALIUM [Suspect]
     Route: 065
  8. CITALOPRAM HYDROBROMIDE [Suspect]
     Route: 048
  9. LEVEMIR [Concomitant]
     Indication: TYPE 2 DIABETES MELLITUS
     Route: 058
  10. FERROUS SULFATE TAB [Concomitant]
     Route: 048
  11. CITALOPRAM HYDROBROMIDE [Suspect]
     Dosage: REDUCED DOSAGE
     Route: 048
  12. ATARAX [Suspect]
     Route: 048
     Dates: start: 20100201, end: 20100623
  13. TRIMEPRAZINE TARTRATE [Concomitant]
     Route: 048
  14. VALIUM [Suspect]
     Dosage: REDUCED DOSAGE
     Route: 065

REACTIONS (4)
  - ABNORMAL BEHAVIOUR [None]
  - SOMNOLENCE [None]
  - DEHYDRATION [None]
  - DISTURBANCE IN ATTENTION [None]
